FAERS Safety Report 16749310 (Version 3)
Quarter: 2019Q3

REPORT INFORMATION
  Report Type: Spontaneous
  Country: BE (occurrence: BE)
  Receive Date: 20190828
  Receipt Date: 20190920
  Transmission Date: 20191005
  Serious: Yes (Death, Life-Threatening, Hospitalization, Other)
  Sender: FDA-Public Use
  Company Number: BE-ACCORD-152954

PATIENT
  Age: 65 Year
  Sex: Female

DRUGS (7)
  1. ARIPIPRAZOLE. [Suspect]
     Active Substance: ARIPIPRAZOLE
     Indication: MENTAL DISORDER
  2. BUPROPION/BUPROPION HYDROCHLORIDE [Suspect]
     Active Substance: BUPROPION HYDROCHLORIDE
     Indication: MENTAL DISORDER
  3. MIRTAZAPINE. [Suspect]
     Active Substance: MIRTAZAPINE
     Indication: MENTAL DISORDER
  4. TRAMADOL. [Suspect]
     Active Substance: TRAMADOL
     Indication: MENTAL DISORDER
  5. AMITRIPTYLINE [Suspect]
     Active Substance: AMITRIPTYLINE
     Indication: MENTAL DISORDER
  6. AMISULPRIDE [Suspect]
     Active Substance: AMISULPRIDE
     Indication: MENTAL DISORDER
  7. NEFOPAM [Suspect]
     Active Substance: NEFOPAM
     Indication: MENTAL DISORDER
     Dosage: INCREASED TO 120 MG/DAY FROM 30MG OVER 2 DAYS
     Route: 048

REACTIONS (2)
  - Serotonin syndrome [Fatal]
  - Shock [Fatal]
